FAERS Safety Report 8446447-8 (Version None)
Quarter: 2012Q2

REPORT INFORMATION
  Report Type: 
  Country: None (occurrence: None)
  Receive Date: 20120618
  Receipt Date: 20120322
  Transmission Date: 20120825
  Serious: No
  Sender: FDA-Public Use
  Company Number: US-TEVA-329401USA

PATIENT
  Sex: Female

DRUGS (4)
  1. TYLOX [Concomitant]
     Dosage: 30 MILLIGRAM;
     Route: 048
  2. ACTIQ [Suspect]
     Indication: OSTEOPOROSIS
  3. ACTIQ [Suspect]
     Indication: NEURALGIA
     Route: 002
  4. ACTIQ [Suspect]
     Indication: SICKLE CELL ANAEMIA

REACTIONS (2)
  - PAIN [None]
  - OFF LABEL USE [None]
